FAERS Safety Report 9947876 (Version 1)
Quarter: 2014Q1

REPORT INFORMATION
  Report Type: Report from Study
  Country: US (occurrence: US)
  Receive Date: 20140303
  Receipt Date: 20140303
  Transmission Date: 20141002
  Serious: No
  Sender: FDA-Public Use
  Company Number: US-ABBVIE-13P-163-1059855-00

PATIENT
  Age: 45 Year
  Sex: Female
  Weight: 77.18 kg

DRUGS (14)
  1. HUMIRA [Suspect]
     Indication: ANKYLOSING SPONDYLITIS
     Dates: start: 201201, end: 20121228
  2. PIROXICAM [Concomitant]
     Indication: ARTHRITIS
  3. AMBIEN [Concomitant]
     Indication: INSOMNIA
  4. CLONAZEPAM [Concomitant]
     Indication: ANXIETY
  5. FLEXERIL [Concomitant]
     Indication: FIBROMYALGIA
  6. HYDROCHLOROTHIAZIDE [Concomitant]
     Indication: BLOOD PRESSURE
  7. MEDROL DOSE PACK [Concomitant]
     Indication: ANKYLOSING SPONDYLITIS
  8. MEDROL DOSE PACK [Concomitant]
     Indication: FIBROMYALGIA
  9. PRILOSEC [Concomitant]
     Indication: GASTROOESOPHAGEAL REFLUX DISEASE
  10. PROZAC [Concomitant]
     Indication: ANXIETY
  11. PROZAC [Concomitant]
     Indication: DEPRESSION
  12. VITAMIN D [Concomitant]
     Indication: MYALGIA
  13. FLUTICASONE [Concomitant]
     Indication: HYPERSENSITIVITY
  14. ZIRTEC [Concomitant]
     Indication: HYPERSENSITIVITY

REACTIONS (10)
  - Musculoskeletal stiffness [Not Recovered/Not Resolved]
  - Insomnia [Not Recovered/Not Resolved]
  - Ankylosing spondylitis [Not Recovered/Not Resolved]
  - Musculoskeletal stiffness [Not Recovered/Not Resolved]
  - Diarrhoea [Not Recovered/Not Resolved]
  - Headache [Not Recovered/Not Resolved]
  - Sciatica [Not Recovered/Not Resolved]
  - Nausea [Not Recovered/Not Resolved]
  - Arthralgia [Not Recovered/Not Resolved]
  - Spinal pain [Not Recovered/Not Resolved]
